FAERS Safety Report 23525281 (Version 1)
Quarter: 2024Q1

REPORT INFORMATION
  Report Type: Report from Study
  Country: US (occurrence: US)
  Receive Date: 20240215
  Receipt Date: 20240215
  Transmission Date: 20240410
  Serious: Yes (Other)
  Sender: FDA-Public Use
  Company Number: US-JNJFOC-20240207631

PATIENT

DRUGS (4)
  1. ERDAFITINIB [Suspect]
     Active Substance: ERDAFITINIB
     Indication: Transitional cell carcinoma
     Dosage: AT DOSE LEVEL-1, 1 AND 2
     Route: 048
  2. ENFORTUMAB VEDOTIN [Suspect]
     Active Substance: ENFORTUMAB VEDOTIN
     Indication: Transitional cell carcinoma
     Dosage: (MAXIMUM DOSE 75 MG) D1,8,15
     Route: 042
  3. ENFORTUMAB VEDOTIN [Suspect]
     Active Substance: ENFORTUMAB VEDOTIN
     Dosage: (MAXIMUM DOSE 100 MG) D1,8,15
     Route: 042
  4. ENFORTUMAB VEDOTIN [Suspect]
     Active Substance: ENFORTUMAB VEDOTIN
     Dosage: (MAXIMUM DOSE 125 MG) D1,8,15
     Route: 042

REACTIONS (14)
  - Neuropathy peripheral [Unknown]
  - Rash [Unknown]
  - Anaemia [Unknown]
  - Paronychia [Unknown]
  - Palmar-plantar erythrodysaesthesia syndrome [Unknown]
  - Decreased appetite [Unknown]
  - Mucosal inflammation [Unknown]
  - Hypercalcaemia [Unknown]
  - Aspartate aminotransferase increased [Unknown]
  - Hypoalbuminaemia [Unknown]
  - Hypomagnesaemia [Unknown]
  - Hyperphosphataemia [Unknown]
  - Alopecia [Unknown]
  - Diarrhoea [Unknown]
